FAERS Safety Report 9228177 (Version 2)
Quarter: 2013Q4

REPORT INFORMATION
  Report Type: Spontaneous
  Country: GB (occurrence: GB)
  Receive Date: 20130412
  Receipt Date: 20131030
  Transmission Date: 20140711
  Serious: Yes (Hospitalization)
  Sender: FDA-Public Use
  Company Number: PHFR2013GB002184

PATIENT
  Age: 20 Year
  Sex: Male

DRUGS (2)
  1. CICLOSPORIN [Suspect]
     Indication: ECZEMA
     Dosage: 200 MG, QD
     Route: 048
  2. FEXOFENADINE [Concomitant]

REACTIONS (7)
  - Eosinophilia [Recovered/Resolved]
  - Red blood cell count increased [Unknown]
  - Polycythaemia [Recovered/Resolved]
  - Platelet count increased [Recovered/Resolved]
  - White blood cell count increased [Recovered/Resolved]
  - Dermatitis exfoliative [Recovered/Resolved]
  - Soft tissue infection [Recovered/Resolved]
